APPROVED DRUG PRODUCT: PROVIGIL
Active Ingredient: MODAFINIL
Strength: 100MG
Dosage Form/Route: TABLET;ORAL
Application: N020717 | Product #001 | TE Code: AB
Applicant: NUVO PHARMACEUTICALS (IRELAND) DAC
Approved: Dec 24, 1998 | RLD: Yes | RS: No | Type: RX